FAERS Safety Report 19051716 (Version 1)
Quarter: 2021Q1

REPORT INFORMATION
  Report Type: Spontaneous
  Country: ES (occurrence: ES)
  Receive Date: 20210324
  Receipt Date: 20210324
  Transmission Date: 20210420
  Serious: Yes (Hospitalization)
  Sender: FDA-Public Use
  Company Number: NVSC2021ES055969

PATIENT
  Age: 76 Year
  Sex: Male
  Weight: 59 kg

DRUGS (2)
  1. HIGROTON [Suspect]
     Active Substance: CHLORTHALIDONE
     Indication: PRODUCT USED FOR UNKNOWN INDICATION
     Dosage: UNK (30 COMPRIMIDOS)
     Route: 065
     Dates: start: 20210209
  2. SEGURIL [Interacting]
     Active Substance: FUROSEMIDE
     Indication: PRODUCT USED FOR UNKNOWN INDICATION
     Dosage: UNK (30 COMPRIMIDOS)
     Route: 048
     Dates: start: 20171026

REACTIONS (1)
  - Electrolyte imbalance [Recovering/Resolving]

NARRATIVE: CASE EVENT DATE: 20210301
